FAERS Safety Report 11502757 (Version 3)
Quarter: 2015Q4

REPORT INFORMATION
  Report Type: Spontaneous
  Country: US (occurrence: US)
  Receive Date: 20150914
  Receipt Date: 20151214
  Transmission Date: 20160304
  Serious: Yes (Other)
  Sender: FDA-Public Use
  Company Number: US-ASTELLAS-2015US028416

PATIENT
  Age: 58 Year
  Sex: Male

DRUGS (2)
  1. XTANDI [Suspect]
     Active Substance: ENZALUTAMIDE
     Indication: PROSTATE CANCER METASTATIC
     Route: 065
     Dates: start: 20150729
  2. XTANDI [Suspect]
     Active Substance: ENZALUTAMIDE
     Indication: PROSTATE CANCER
     Dosage: 160 MG (4 CAPSULES), ONCE DAILY
     Route: 048
     Dates: start: 20150826

REACTIONS (14)
  - Dyspnoea [Unknown]
  - Erythema [Unknown]
  - Peripheral swelling [Unknown]
  - Skin depigmentation [Unknown]
  - Flank pain [Unknown]
  - Dizziness [Unknown]
  - Pallor [Unknown]
  - Weight increased [Unknown]
  - Back pain [Unknown]
  - Muscle tightness [Unknown]
  - Balance disorder [Unknown]
  - Headache [Unknown]
  - Swelling [Unknown]
  - Pain in extremity [Unknown]

NARRATIVE: CASE EVENT DATE: 2015
